FAERS Safety Report 15929526 (Version 2)
Quarter: 2019Q2

REPORT INFORMATION
  Report Type: Spontaneous
  Country: US (occurrence: US)
  Receive Date: 20190206
  Receipt Date: 20190412
  Transmission Date: 20190711
  Serious: No
  Sender: FDA-Public Use
  Company Number: US-SA-2019SA031910

PATIENT
  Age: 57 Year
  Sex: Female

DRUGS (9)
  1. FOLIC ACID. [Concomitant]
     Active Substance: FOLIC ACID
  2. TRIAMTERENE AND HYDROCHLOROTHIAZID [Concomitant]
     Active Substance: HYDROCHLOROTHIAZIDE\TRIAMTERENE
  3. TRIAMTERENE. [Concomitant]
     Active Substance: TRIAMTERENE
  4. XIIDRA [Concomitant]
     Active Substance: LIFITEGRAST
  5. SIMVASTATIN. [Concomitant]
     Active Substance: SIMVASTATIN
  6. METHOTREXATE. [Concomitant]
     Active Substance: METHOTREXATE
  7. RESTASIS [Concomitant]
     Active Substance: CYCLOSPORINE
  8. KEVZARA [Suspect]
     Active Substance: SARILUMAB
     Dosage: 200 MG, QOW
     Route: 058
     Dates: start: 201901
  9. OMEPRAZOLE. [Concomitant]
     Active Substance: OMEPRAZOLE

REACTIONS (4)
  - Stress [Unknown]
  - Fatigue [Unknown]
  - Musculoskeletal stiffness [Unknown]
  - Injection site reaction [Unknown]
